FAERS Safety Report 6734641-3 (Version None)
Quarter: 2010Q2

REPORT INFORMATION
  Report Type: 
  Country: None (occurrence: None)
  Receive Date: 20100519
  Receipt Date: 20100503
  Transmission Date: 20101027
  Serious: Yes (Other)
  Sender: FDA-Public Use
  Company Number: 1-22477830

PATIENT
  Age: 32 Year
  Sex: Female
  Weight: 52.1637 kg

DRUGS (2)
  1. CARBAMAZEPINE [Suspect]
     Indication: GRAND MAL CONVULSION
     Dosage: 200 MG DAILY, ORAL
     Route: 048
     Dates: start: 19970101
  2. MULTI-VITAMINS [Concomitant]

REACTIONS (4)
  - BONE DENSITY DECREASED [None]
  - CONVULSION [None]
  - INCORRECT DOSE ADMINISTERED [None]
  - TOOTH FRACTURE [None]
